FAERS Safety Report 9395893 (Version 1)
Quarter: 2013Q3

REPORT INFORMATION
  Report Type: Spontaneous
  Country: FR (occurrence: FR)
  Receive Date: 20130711
  Receipt Date: 20130711
  Transmission Date: 20140515
  Serious: Yes (Hospitalization, Other)
  Sender: FDA-Public Use
  Company Number: FR-BRISTOL-MYERS SQUIBB COMPANY-19092055

PATIENT
  Age: 78 Year
  Sex: Male

DRUGS (9)
  1. COUMADINE [Suspect]
     Indication: ARRHYTHMIA SUPRAVENTRICULAR
     Dosage: INTERR 20MAY13?RESTARTED MAY13
     Route: 048
     Dates: start: 201305
  2. AMLODIPINE [Concomitant]
  3. ATARAX [Concomitant]
  4. HALDOL [Concomitant]
     Dosage: 1DF=8 DROPS
  5. INEXIUM [Concomitant]
  6. LYRICA [Concomitant]
  7. PERINDOPRIL [Concomitant]
  8. TAHOR [Concomitant]
  9. XATRAL [Concomitant]

REACTIONS (6)
  - Haematuria [Recovered/Resolved]
  - Diarrhoea [Recovered/Resolved]
  - Vomiting [Recovered/Resolved]
  - Decreased appetite [Recovered/Resolved]
  - Dysuria [Recovered/Resolved]
  - International normalised ratio increased [Recovered/Resolved]
